FAERS Safety Report 13462546 (Version 2)
Quarter: 2017Q2

REPORT INFORMATION
  Report Type: Report from Study
  Country: DE (occurrence: DE)
  Receive Date: 20170420
  Receipt Date: 20170505
  Transmission Date: 20170830
  Serious: Yes (Other)
  Sender: FDA-Public Use
  Company Number: DE-BAYER-2017-075089

PATIENT
  Sex: Female
  Weight: 2.19 kg

DRUGS (1)
  1. BETAFERON [Suspect]
     Active Substance: INTERFERON BETA-1B
     Dosage: UNK
     Route: 064

REACTIONS (3)
  - Low birth weight baby [None]
  - Ventricular septal defect [None]
  - Foetal exposure during pregnancy [None]
